FAERS Safety Report 4785088-0 (Version None)
Quarter: 2005Q3

REPORT INFORMATION
  Report Type: 
  Country: None (occurrence: None)
  Receive Date: 20050928
  Receipt Date: 20050921
  Transmission Date: 20060218
  Serious: Yes (Life-Threatening, Hospitalization, Other)
  Sender: FDA-Public Use
  Company Number: DEWYE995321SEP05

PATIENT
  Age: 50 Year
  Sex: Male

DRUGS (6)
  1. TREVILOR RETARD (VENLAFAXINE HYDROCHLORIDE, CAPSULE, EXTENDED RELEASE, [Suspect]
     Indication: DEPRESSION
     Dosage: 75 MG 1X PER 1 DAY; 150 MG 2X PER 1 DAY; 75 MG 1X PER 1 DAY
     Dates: start: 20050601, end: 20050703
  2. TREVILOR RETARD (VENLAFAXINE HYDROCHLORIDE, CAPSULE, EXTENDED RELEASE, [Suspect]
     Indication: DEPRESSION
     Dosage: 75 MG 1X PER 1 DAY; 150 MG 2X PER 1 DAY; 75 MG 1X PER 1 DAY
     Dates: start: 20050704, end: 20050706
  3. TREVILOR RETARD (VENLAFAXINE HYDROCHLORIDE, CAPSULE, EXTENDED RELEASE, [Suspect]
     Indication: DEPRESSION
     Dosage: 75 MG 1X PER 1 DAY; 150 MG 2X PER 1 DAY; 75 MG 1X PER 1 DAY
     Dates: start: 20050707, end: 20050721
  4. MIRTAZAPINE [Suspect]
     Indication: DEPRESSION
     Dosage: 45 MG 1X PER 1 DAY
     Dates: start: 20050707, end: 20050721
  5. LISINOPRIL [Concomitant]
  6. DAROB (SOTALOL HYDROCHLORIDE) [Concomitant]

REACTIONS (14)
  - ACTIVATED PARTIAL THROMBOPLASTIN TIME PROLONGED [None]
  - ALANINE AMINOTRANSFERASE INCREASED [None]
  - ANTITHROMBIN III DECREASED [None]
  - ASPARTATE AMINOTRANSFERASE INCREASED [None]
  - CARDIOPULMONARY FAILURE [None]
  - COAGULATION FACTOR VIII LEVEL INCREASED [None]
  - CYANOSIS [None]
  - DIZZINESS [None]
  - FIBRIN D DIMER INCREASED [None]
  - GAMMA-GLUTAMYLTRANSFERASE INCREASED [None]
  - INTERNATIONAL NORMALISED RATIO INCREASED [None]
  - LOSS OF CONSCIOUSNESS [None]
  - PROTHROMBIN TIME PROLONGED [None]
  - PULMONARY EMBOLISM [None]
